FAERS Safety Report 4599861-5 (Version None)
Quarter: 2005Q1

REPORT INFORMATION
  Report Type: 
  Country: None (occurrence: None)
  Receive Date: 20050303
  Receipt Date: 20050221
  Transmission Date: 20050727
  Serious: Yes (Hospitalization)
  Sender: FDA-Public Use
  Company Number: 2005CG00392

PATIENT
  Age: 45 Year
  Sex: Female
  Weight: 75 kg

DRUGS (9)
  1. ATACAND [Suspect]
     Dosage: 16 MG QD PO
     Route: 048
  2. PROFENID [Suspect]
     Dosage: 200 MG QD PO
     Route: 048
     Dates: end: 20041112
  3. OGAST [Suspect]
     Dosage: 1 DF QD PO
     Route: 048
  4. ARAVA [Suspect]
     Dosage: 20 MG QD PO
     Route: 048
     Dates: start: 20021201, end: 20041018
  5. EFFERALGAN [Suspect]
     Dosage: 500 MG QID PO
     Route: 048
  6. ZYRTEC [Suspect]
     Dosage: 10 MG QD PO
     Route: 048
  7. TARDYFERON B [Concomitant]
  8. ENDOTELON [Concomitant]
  9. NASONEX [Concomitant]

REACTIONS (14)
  - ACTIVATED PARTIAL THROMBOPLASTIN TIME PROLONGED [None]
  - ANAL SPHINCTER ATONY [None]
  - BLOOD BICARBONATE INCREASED [None]
  - BLOOD CHLORIDE DECREASED [None]
  - BLOOD GLUCOSE INCREASED [None]
  - BLOOD POTASSIUM DECREASED [None]
  - C-REACTIVE PROTEIN INCREASED [None]
  - COLITIS [None]
  - ERYTHEMA [None]
  - HEPATIC STEATOSIS [None]
  - MICROCYTIC ANAEMIA [None]
  - PANCREATITIS [None]
  - PROCTOCOLITIS [None]
  - PROTEIN TOTAL DECREASED [None]
